FAERS Safety Report 17222949 (Version 6)
Quarter: 2020Q2

REPORT INFORMATION
  Report Type: Spontaneous
  Country: US (occurrence: US)
  Receive Date: 20200102
  Receipt Date: 20200403
  Transmission Date: 20200713
  Serious: Yes (Other)
  Sender: FDA-Public Use
  Company Number: US-009507513-1912USA011885

PATIENT
  Age: 60 Year
  Sex: Male

DRUGS (2)
  1. DULERA [Suspect]
     Active Substance: FORMOTEROL FUMARATE DIHYDRATE\MOMETASONE FUROATE
     Indication: COUGH
     Dosage: 1 PUFF AS NEEDED
     Route: 055
     Dates: start: 20191221
  2. DULERA [Suspect]
     Active Substance: FORMOTEROL FUMARATE DIHYDRATE\MOMETASONE FUROATE
     Indication: ASTHMA
     Dosage: 1 PUFF AS NEEDED
     Route: 055
     Dates: start: 2011

REACTIONS (10)
  - Product use in unapproved indication [Unknown]
  - Incorrect dose administered [Unknown]
  - Pneumonia [Not Recovered/Not Resolved]
  - Circumstance or information capable of leading to medication error [Unknown]
  - Bronchitis [Not Recovered/Not Resolved]
  - Product quality issue [Unknown]
  - Poor quality device used [Unknown]
  - Movement disorder [Not Recovered/Not Resolved]
  - Dysphonia [Not Recovered/Not Resolved]
  - Inappropriate schedule of product administration [Unknown]

NARRATIVE: CASE EVENT DATE: 2011
